FAERS Safety Report 12692399 (Version 1)
Quarter: 2016Q3

REPORT INFORMATION
  Report Type: Spontaneous
  Country: ES (occurrence: ES)
  Receive Date: 20160828
  Receipt Date: 20160828
  Transmission Date: 20161109
  Serious: Yes (Other)
  Sender: FDA-Public Use
  Company Number: PHHY2016ES115273

PATIENT
  Sex: Male

DRUGS (8)
  1. CICLOSPORIN [Suspect]
     Active Substance: CYCLOSPORINE
     Indication: IMMUNOSUPPRESSANT DRUG THERAPY
  2. MYCOPHENOLATE MOFETIL. [Suspect]
     Active Substance: MYCOPHENOLATE MOFETIL
     Indication: IMMUNOSUPPRESSANT DRUG THERAPY
  3. IMATINIB [Suspect]
     Active Substance: IMATINIB
     Indication: CHRONIC GRAFT VERSUS HOST DISEASE
     Dosage: 100 MG, QD
     Route: 065
  4. CICLOSPORIN [Suspect]
     Active Substance: CYCLOSPORINE
     Indication: PROPHYLAXIS AGAINST GRAFT VERSUS HOST DISEASE
  5. MYCOPHENOLATE MOFETIL. [Suspect]
     Active Substance: MYCOPHENOLATE MOFETIL
     Indication: PROPHYLAXIS AGAINST GRAFT VERSUS HOST DISEASE
  6. CICLOSPORIN [Suspect]
     Active Substance: CYCLOSPORINE
     Indication: STEM CELL TRANSPLANT
     Dosage: 3 MG/KG, QD
     Route: 065
  7. IMATINIB [Suspect]
     Active Substance: IMATINIB
     Indication: CHRONIC GRAFT VERSUS HOST DISEASE IN SKIN
  8. MYCOPHENOLATE MOFETIL. [Suspect]
     Active Substance: MYCOPHENOLATE MOFETIL
     Indication: STEM CELL TRANSPLANT
     Dosage: 1 G, Q8H
     Route: 065

REACTIONS (4)
  - Neutropenia [Unknown]
  - Chronic graft versus host disease in skin [Unknown]
  - Off label use [Unknown]
  - Chronic graft versus host disease [Unknown]
